FAERS Safety Report 6831114-4 (Version None)
Quarter: 2010Q3

REPORT INFORMATION
  Report Type: 
  Country: None (occurrence: None)
  Receive Date: 20100712
  Receipt Date: 20100701
  Transmission Date: 20110219
  Serious: Yes (Hospitalization)
  Sender: FDA-Public Use
  Company Number: DE-BAYER-201031151GPV

PATIENT
  Age: 45 Year
  Sex: Female

DRUGS (10)
  1. INTERFERON BETA-1B [Suspect]
     Indication: MULTIPLE SCLEROSIS
     Route: 058
     Dates: start: 20070623
  2. RAMIPRIL [Concomitant]
     Indication: HYPERTENSION
     Dosage: TOTAL DAILY DOSE: 2.5 MG
     Route: 048
     Dates: start: 20080926
  3. RAMIPRIL [Concomitant]
     Dosage: TOTAL DAILY DOSE: 5 MG
     Route: 048
  4. IBUPROFEN [Concomitant]
     Indication: HEADACHE
     Dosage: AS USED: 400-800 MG
     Route: 048
  5. BERLOSIN [Concomitant]
     Indication: HEADACHE
     Route: 048
  6. CERAZETTE [Concomitant]
     Indication: ORAL CONTRACEPTION
     Dosage: TOTAL DAILY DOSE: 1 DF
     Route: 048
  7. MODAFINIL [Concomitant]
     Indication: FATIGUE
     Route: 048
     Dates: end: 20070925
  8. ATENOLOL [Concomitant]
     Indication: HYPERTENSION
     Route: 048
     Dates: end: 20080101
  9. LEVOTHYROXINE SODIUM [Concomitant]
     Indication: HYPOTHYROIDISM
     Route: 048
     Dates: start: 20100518
  10. FLUPIRTINE [Concomitant]
     Indication: PAIN
     Route: 048
     Dates: start: 20080603, end: 20080630

REACTIONS (10)
  - CARPAL TUNNEL SYNDROME [None]
  - CHEST PAIN [None]
  - EYE PAIN [None]
  - FACIAL PAIN [None]
  - FEELING HOT [None]
  - HEADACHE [None]
  - HYPOTHYROIDISM [None]
  - INJECTION SITE ERYTHEMA [None]
  - MEMORY IMPAIRMENT [None]
  - PARAESTHESIA [None]
